FAERS Safety Report 12719709 (Version 1)
Quarter: 2016Q3

REPORT INFORMATION
  Report Type: Spontaneous
  Country: US (occurrence: US)
  Receive Date: 20160907
  Receipt Date: 20160907
  Transmission Date: 20161109
  Serious: No
  Sender: FDA-Public Use
  Company Number: US-JNJFOC-20160608745

PATIENT
  Age: 39 Year
  Sex: Male

DRUGS (2)
  1. SIMPONI [Suspect]
     Active Substance: GOLIMUMAB
     Indication: COLITIS ULCERATIVE
     Route: 058
  2. LIALDA [Concomitant]
     Active Substance: MESALAMINE
     Route: 065

REACTIONS (3)
  - Pyrexia [Unknown]
  - Fatigue [Unknown]
  - Drug ineffective [Unknown]
